FAERS Safety Report 25082466 (Version 2)
Quarter: 2025Q2

REPORT INFORMATION
  Report Type: Spontaneous
  Country: JP (occurrence: JP)
  Receive Date: 20250317
  Receipt Date: 20250402
  Transmission Date: 20250717
  Serious: Yes (Death, Other)
  Sender: BRISTOL MYERS SQUIBB
  Company Number: JP-TAIHO-2024-012105

PATIENT
  Age: 78 Year
  Sex: Male

DRUGS (3)
  1. ABRAXANE [Suspect]
     Active Substance: PACLITAXEL
     Indication: Non-small cell lung cancer
     Dosage: 100 MG/M2/DAY, DETAILS NOT REPORTED ?DAILY DOSE: 100 MILLIGRAM(S)/SQ. METER
     Route: 041
     Dates: start: 20240905, end: 20241015
  2. ATEZOLIZUMAB [Suspect]
     Active Substance: ATEZOLIZUMAB
     Indication: Non-small cell lung cancer
     Dosage: 1200 MG/DAY, DETAILS NOT REPORTED?DAILY DOSE: 1200 MILLIGRAM(S)
     Route: 051
     Dates: start: 20240905, end: 20241015
  3. CARBOPLATIN [Suspect]
     Active Substance: CARBOPLATIN
     Indication: Non-small cell lung cancer
     Dosage: AUC = 6/DAY, DETAILS NOT REPORTED
     Route: 051
     Dates: start: 20240905, end: 20241015

REACTIONS (1)
  - Interstitial lung disease [Fatal]
